FAERS Safety Report 4970532-6 (Version None)
Quarter: 2006Q2

REPORT INFORMATION
  Report Type: 
  Country: None (occurrence: None)
  Receive Date: 20060406
  Receipt Date: 20060327
  Transmission Date: 20061013
  Serious: Yes (Other)
  Sender: FDA-Public Use
  Company Number: 2006RR-01866

PATIENT
  Age: 75 Year
  Sex: Male
  Weight: 101 kg

DRUGS (5)
  1. METFORMIN [Suspect]
     Indication: DIABETES MELLITUS NON-INSULIN-DEPENDENT
     Dosage: 500 MG, BID, ORAL
     Route: 048
     Dates: start: 20060203, end: 20060217
  2. AMLODIPINE [Concomitant]
  3. BENDROFLUAZIDE (BENDROFLUMETHIAZIDE) [Concomitant]
  4. SIMVASTATIN [Concomitant]
  5. LOSARTAN POTASSIUM [Concomitant]

REACTIONS (2)
  - MALAISE [None]
  - RENAL FAILURE ACUTE [None]
